FAERS Safety Report 5233384-5 (Version None)
Quarter: 2007Q1

REPORT INFORMATION
  Report Type: 
  Country: None (occurrence: None)
  Receive Date: 20070206
  Receipt Date: 20070125
  Transmission Date: 20070707
  Serious: Yes (Hospitalization)
  Sender: FDA-Public Use
  Company Number: 15581

PATIENT
  Age: 9 Year
  Sex: Male
  Weight: 26.8 kg

DRUGS (18)
  1. PENTOSTATIN [Suspect]
     Indication: CHRONIC GRAFT VERSUS HOST DISEASE
     Dosage: 4 MG/M2 FORTNIGHTLY IV
     Route: 042
     Dates: start: 20061213, end: 20061229
  2. PENTOSTATIN [Suspect]
     Indication: CHRONIC GRAFT VERSUS HOST DISEASE
     Dosage: 4 MG/M2 FORTNIGHTLY IV
     Route: 042
     Dates: start: 20070118
  3. ACYCLOVIR [Concomitant]
  4. BUDESONIDE [Concomitant]
  5. CALCIUM PHOSPHATE [Concomitant]
  6. CELLCEPT [Concomitant]
  7. FAMOTIDINE [Concomitant]
  8. FOLIC ACID [Concomitant]
  9. DAPSONE [Concomitant]
  10. KEPPRA [Concomitant]
  11. MAGNESIUM OXIDE [Concomitant]
  12. MICAFUNGIN [Concomitant]
  13. MULTIVITAMIN /00831701/ [Concomitant]
  14. ONDANSETRON [Concomitant]
  15. OXYCODONE HCL [Concomitant]
  16. POTASSIUM CHLORIDE [Concomitant]
  17. PREDNISONE 50MG TAB [Concomitant]
  18. PROZAC [Concomitant]

REACTIONS (3)
  - ACUTE GRAFT VERSUS HOST DISEASE IN LIVER [None]
  - DIARRHOEA [None]
  - ESCHERICHIA SEPSIS [None]
